FAERS Safety Report 8260438-1 (Version None)
Quarter: 2012Q2

REPORT INFORMATION
  Report Type: 
  Country: None (occurrence: None)
  Receive Date: 20120404
  Receipt Date: 20120402
  Transmission Date: 20120825
  Serious: Yes (Hospitalization)
  Sender: FDA-Public Use
  Company Number: US-FRI-1000029529

PATIENT
  Age: 67 Year
  Sex: Female

DRUGS (12)
  1. DALIRESP [Suspect]
     Dosage: 1000 MCG
     Route: 048
     Dates: start: 20120101, end: 20120326
  2. DALIRESP [Suspect]
     Dosage: 500 MCG
     Route: 048
     Dates: start: 20120327, end: 20120329
  3. ABILIFY [Concomitant]
     Dosage: 2 MG
     Route: 048
  4. ADVAIR DISKUS 100/50 [Concomitant]
     Indication: CHRONIC OBSTRUCTIVE PULMONARY DISEASE
     Dosage: 250/50 MCG 1 PUFF TWICE DAILY
     Route: 048
  5. SPIRIVA [Concomitant]
     Indication: CHRONIC OBSTRUCTIVE PULMONARY DISEASE
     Dosage: 18 MCG 1 PUFF DAILY
     Route: 048
  6. DALIRESP [Suspect]
     Indication: CHRONIC OBSTRUCTIVE PULMONARY DISEASE
     Dosage: 500 MCG
     Route: 048
     Dates: start: 20120101, end: 20120101
  7. NORCO [Concomitant]
     Indication: DYSPNOEA
     Dosage: 7.5/325 MG EVERY 4HRS AS NEEDED
     Route: 048
  8. CITALOPRAM HYDROBROMIDE [Concomitant]
     Indication: DEPRESSION
     Dosage: 60 MG
     Route: 048
  9. CITALOPRAM HYDROBROMIDE [Concomitant]
     Indication: ANXIETY
  10. LORAZEPAM [Concomitant]
     Indication: ANXIETY
     Dosage: 6 MG
     Route: 048
  11. RAMIPRIL [Concomitant]
     Indication: HYPERTENSION
     Dosage: 10 MG
     Route: 048
  12. PREMARIN [Concomitant]
     Dosage: 0.5 MG
     Route: 048

REACTIONS (4)
  - PSYCHIATRIC SYMPTOM [None]
  - OVERDOSE [None]
  - DYSPNOEA [None]
  - WEIGHT DECREASED [None]
